FAERS Safety Report 8908370 (Version 1)
Quarter: 2012Q4

REPORT INFORMATION
  Report Type: Report from Study
  Country: LB (occurrence: LB)
  Receive Date: 20121114
  Receipt Date: 20121114
  Transmission Date: 20130627
  Serious: Yes (Hospitalization)
  Sender: FDA-Public Use
  Company Number: LB-INCYTE CORPORATION-2012IN002255

PATIENT
  Age: 50 Year
  Sex: Female

DRUGS (2)
  1. INC424 [Suspect]
     Indication: MYELOFIBROSIS
     Dosage: 20 mg, bid
     Route: 048
     Dates: start: 201110, end: 20120628
  2. PREDNISONE [Concomitant]

REACTIONS (2)
  - Anaemia haemolytic autoimmune [Recovered/Resolved]
  - Pneumonia [Unknown]
